FAERS Safety Report 23766647 (Version 1)
Quarter: 2024Q2

REPORT INFORMATION
  Report Type: Spontaneous
  Country: US (occurrence: US)
  Receive Date: 20240422
  Receipt Date: 20240422
  Transmission Date: 20240715
  Serious: Yes (Other)
  Sender: FDA-Public Use
  Company Number: US-HALEON-2167033

PATIENT

DRUGS (1)
  1. NICORETTE [Suspect]
     Active Substance: NICOTINE
     Indication: Product used for unknown indication

REACTIONS (7)
  - Nicotine dependence [Unknown]
  - Tooth loss [Unknown]
  - Dysphagia [Unknown]
  - Product use issue [Unknown]
  - Oesophageal rupture [Unknown]
  - Gastric ulcer [Unknown]
  - Oral discomfort [Unknown]
